FAERS Safety Report 19477005 (Version 1)
Quarter: 2021Q2

REPORT INFORMATION
  Report Type: Spontaneous
  Country: SE (occurrence: SE)
  Receive Date: 20210630
  Receipt Date: 20210630
  Transmission Date: 20210717
  Serious: Yes (Hospitalization)
  Sender: FDA-Public Use
  Company Number: SE-ACCORD-229939

PATIENT
  Age: 39 Year
  Sex: Male

DRUGS (5)
  1. SERTRALINE [Suspect]
     Active Substance: SERTRALINE HYDROCHLORIDE
     Indication: PRODUCT USED FOR UNKNOWN INDICATION
     Dates: start: 202104
  2. ZOLPIDEM [Concomitant]
     Active Substance: ZOLPIDEM TARTRATE
     Dosage: 1 TABLET AT NIGHT IF NEEDED
  3. VOXRA [Concomitant]
     Active Substance: BUPROPION HYDROCHLORIDE
     Dosage: STRENGTH150MG
  4. PROPAVAN [Concomitant]
     Active Substance: PROPIOMAZINE
     Dosage: 1?2 AT NIGHT IF NEEDED
  5. QUETIAPINE/QUETIAPINE FUMARATE [Concomitant]
     Active Substance: QUETIAPINE FUMARATE
     Dosage: 1 TABLET IF NEEDED (MAXIMUM 6 PCS / DAY)

REACTIONS (2)
  - Nystagmus [Unknown]
  - Dizziness [Unknown]

NARRATIVE: CASE EVENT DATE: 20210504
